FAERS Safety Report 18136852 (Version 2)
Quarter: 2020Q4

REPORT INFORMATION
  Report Type: Spontaneous
  Country: CA (occurrence: CA)
  Receive Date: 20200812
  Receipt Date: 20201007
  Transmission Date: 20210113
  Serious: Yes (Hospitalization, Other)
  Sender: FDA-Public Use
  Company Number: CA-AUROBINDO-AUR-APL-2020-038329

PATIENT
  Age: 44 Year
  Sex: Male

DRUGS (22)
  1. AMITRIPTYLINE [Interacting]
     Active Substance: AMITRIPTYLINE
     Indication: PAIN
     Dosage: UNK
     Route: 065
  2. DRONABINOL. [Interacting]
     Active Substance: DRONABINOL
     Indication: ANALGESIC THERAPY
     Dosage: 0.3 G/WEEK- 1
     Route: 065
  3. TEMAZEPAM. [Interacting]
     Active Substance: TEMAZEPAM
     Indication: PAIN
     Route: 065
  4. MAGNESIUM SULFATE. [Concomitant]
     Active Substance: MAGNESIUM SULFATE
     Dosage: 15 MG?KG- 1?HR- 1
     Route: 065
  5. ONDANSETRON [Concomitant]
     Active Substance: ONDANSETRON
     Indication: PROPHYLAXIS
     Dosage: UNK UNK, DAILY
     Route: 042
  6. AMITRIPTYLINE [Interacting]
     Active Substance: AMITRIPTYLINE
     Indication: NEURALGIA
  7. DRONABINOL. [Interacting]
     Active Substance: DRONABINOL
     Dosage: UNK (VAPORIZED THC USE (TWO-THREE TIMES HIS USUAL DOSE))
     Route: 065
  8. KETAMINE [Interacting]
     Active Substance: KETAMINE
     Indication: PAIN
     Dosage: 0.5 MG/KG- 1 (BOLUS) (HIGH DOSE, 30 HR OVER FIVE DAYS; 8:00 AM TO 2:00 PM EACH DAY)
     Route: 065
  9. DEXAMETHASONE. [Concomitant]
     Active Substance: DEXAMETHASONE
     Indication: PROPHYLAXIS
     Dosage: UNK UNK, DAILY
     Route: 042
  10. CANNABIDIOL [Interacting]
     Active Substance: CANNABIDIOL
     Indication: PAIN
     Dosage: UNK (VAPORIZED OIL)
     Route: 065
  11. KETAMINE [Interacting]
     Active Substance: KETAMINE
     Indication: NEURALGIA
     Dosage: 0.5 MG/KG-1 HR-1 (BOLUS) (HIGH DOSE, 30 HR OVER FIVE DAYS; 8:00 AM TO 2:00 PM EACH DAY)
     Route: 040
  12. KETAMINE [Interacting]
     Active Substance: KETAMINE
     Dosage: 1.6 MILLIGRAM/KILOGRAM, EVERY HOUR (HIGH DOSE, 30 HR OVER FIVE DAYS; 8:00 AM TO 2:00 PM EACH DAY)
     Route: 042
  13. DULOXETINE. [Interacting]
     Active Substance: DULOXETINE
     Indication: NEURALGIA
  14. ZOPICLONE [Interacting]
     Active Substance: ZOPICLONE
     Indication: PAIN
     Dosage: UNK
     Route: 065
  15. ZOPICLONE [Interacting]
     Active Substance: ZOPICLONE
     Indication: NEURALGIA
  16. CANNABIDIOL [Interacting]
     Active Substance: CANNABIDIOL
     Indication: NEURALGIA
  17. MIDAZOLAM. [Interacting]
     Active Substance: MIDAZOLAM
     Indication: PRODUCT USED FOR UNKNOWN INDICATION
     Dosage: UNK UNK, DAILY
     Route: 042
  18. MIDAZOLAM. [Interacting]
     Active Substance: MIDAZOLAM
     Indication: PROPHYLAXIS
  19. TEMAZEPAM. [Interacting]
     Active Substance: TEMAZEPAM
     Indication: NEURALGIA
  20. LIDOCAINE. [Concomitant]
     Active Substance: LIDOCAINE
     Indication: ANALGESIC THERAPY
     Dosage: 5 MG?KG-1 (BOLUS)
     Route: 065
  21. MAGNESIUM SULFATE. [Concomitant]
     Active Substance: MAGNESIUM SULFATE
     Indication: ANALGESIC THERAPY
     Dosage: 50 MG?KG- 1 BOLUS
     Route: 065
  22. DULOXETINE. [Suspect]
     Active Substance: DULOXETINE
     Indication: PAIN
     Dosage: UNK
     Route: 065

REACTIONS (3)
  - Behaviour disorder [Recovered/Resolved]
  - Drug interaction [Recovered/Resolved]
  - Drug level increased [Recovered/Resolved]
